FAERS Safety Report 6095132-9 (Version None)
Quarter: 2009Q1

REPORT INFORMATION
  Report Type: 
  Country: None (occurrence: None)
  Receive Date: 20090227
  Receipt Date: 20080128
  Transmission Date: 20090719
  Serious: No
  Sender: FDA-Public Use
  Company Number: A0705580A

PATIENT
  Age: 28 Year
  Sex: Female

DRUGS (7)
  1. LAMICTAL [Suspect]
     Indication: BIPOLAR DISORDER
     Dosage: 150MG TWICE PER DAY
     Route: 048
     Dates: start: 20060801, end: 20070123
  2. TRILEPTAL [Concomitant]
  3. AMBIEN [Concomitant]
  4. ATIVAN [Concomitant]
  5. GEODON [Concomitant]
  6. HYDROXYZINE HCL [Concomitant]
     Route: 048
  7. VITAMIN TAB [Concomitant]

REACTIONS (1)
  - RASH [None]
